FAERS Safety Report 7439608-8 (Version None)
Quarter: 2011Q2

REPORT INFORMATION
  Report Type: 
  Country: None (occurrence: None)
  Receive Date: 20110427
  Receipt Date: 20101209
  Transmission Date: 20111010
  Serious: Yes (Hospitalization, Other)
  Sender: FDA-Public Use
  Company Number: US-BAYER-201021953NA

PATIENT
  Age: 28 Year
  Sex: Female
  Weight: 75.737 kg

DRUGS (4)
  1. YAZ [Suspect]
     Indication: CONTRACEPTION
     Dosage: UNK UNK, QD
     Route: 048
     Dates: start: 20060101, end: 20070430
  2. YAZ [Suspect]
     Indication: PREMENSTRUAL SYNDROME
  3. YAZ [Suspect]
     Indication: MENSTRUATION IRREGULAR
  4. XANAX [Concomitant]
     Dosage: UNK UNK, PRN
     Route: 048

REACTIONS (1)
  - PULMONARY EMBOLISM [None]
